FAERS Safety Report 5152453-1 (Version None)
Quarter: 2006Q4

REPORT INFORMATION
  Report Type: 
  Country: None (occurrence: None)
  Receive Date: 20061109
  Receipt Date: 20061103
  Transmission Date: 20070319
  Serious: Yes (Death)
  Sender: FDA-Public Use
  Company Number: CERZ-10924

PATIENT
  Age: 4 Year
  Sex: Male

DRUGS (1)
  1. CEREZYME [Suspect]
     Indication: GAUCHER'S DISEASE
     Dosage: 1600 UNITS Q2WKS; IV
     Route: 042

REACTIONS (3)
  - FATIGUE [None]
  - PNEUMONIA [None]
  - RESPIRATORY FAILURE [None]
